FAERS Safety Report 7945729-3 (Version None)
Quarter: 2011Q4

REPORT INFORMATION
  Report Type: 
  Country: None (occurrence: None)
  Receive Date: 20111125
  Receipt Date: 20111121
  Transmission Date: 20120403
  Serious: Yes (Death, Disabling)
  Sender: FDA-Public Use
  Company Number: ADR-2011-11455

PATIENT
  Age: 64 Year
  Sex: Male

DRUGS (1)
  1. BACLOFEN [Suspect]
     Indication: MULTIPLE SYSTEM ATROPHY
     Dosage: 65 MCG/DAY INTRATHECAL
     Route: 037

REACTIONS (1)
  - DEATH [None]
